FAERS Safety Report 14614831 (Version 2)
Quarter: 2018Q2

REPORT INFORMATION
  Report Type: Report from Study
  Country: GB (occurrence: GB)
  Receive Date: 20180308
  Receipt Date: 20180522
  Transmission Date: 20180711
  Serious: Yes (Other)
  Sender: FDA-Public Use
  Company Number: GB-TEVA-2018-GB-864739

PATIENT
  Age: 38 Year
  Sex: Female
  Weight: 70 kg

DRUGS (2)
  1. COPAXONE [Suspect]
     Active Substance: GLATIRAMER ACETATE
     Dosage: 20 MILLIGRAM DAILY;
     Route: 058
     Dates: start: 2012, end: 20180215
  2. COPAXONE [Suspect]
     Active Substance: GLATIRAMER ACETATE
     Indication: MULTIPLE SCLEROSIS
     Dosage: 20 MILLIGRAM DAILY;
     Route: 058
     Dates: start: 20170915, end: 20180215

REACTIONS (9)
  - Heart rate increased [Unknown]
  - Lip swelling [Unknown]
  - Immediate post-injection reaction [Recovered/Resolved]
  - Muscle tightness [Unknown]
  - Throat tightness [Unknown]
  - Anxiety [Recovered/Resolved]
  - Chest discomfort [Recovered/Resolved]
  - Adverse drug reaction [Unknown]
  - Sensation of blood flow [Unknown]

NARRATIVE: CASE EVENT DATE: 20180215
